FAERS Safety Report 10791071 (Version 1)
Quarter: 2015Q1

REPORT INFORMATION
  Report Type: Spontaneous
  Country: US (occurrence: US)
  Receive Date: 20150212
  Receipt Date: 20150212
  Transmission Date: 20150721
  Serious: No
  Sender: FDA-Public Use
  Company Number: US-GLAXOSMITHKLINE-US2015GSK019270

PATIENT
  Sex: Male
  Weight: 136.5 kg

DRUGS (6)
  1. FAMOTIDINE TABLET [Concomitant]
  2. CARVEDILOL TABLET [Concomitant]
     Active Substance: CARVEDILOL
  3. METFORMIN HYDROCHLORIDE TABLET [Concomitant]
  4. LISINOPRIL TABLET [Concomitant]
     Active Substance: LISINOPRIL
  5. VOTRIENT [Suspect]
     Active Substance: PAZOPANIB HYDROCHLORIDE
     Indication: RENAL CELL CARCINOMA
     Dosage: 400 MG, QD
     Route: 048
     Dates: start: 20150211
  6. METOCLOPRAMIDE HYDROCHLORIDE TABLET [Concomitant]

REACTIONS (2)
  - Hair colour changes [Unknown]
  - Drug ineffective [Unknown]
